FAERS Safety Report 4910951-7 (Version None)
Quarter: 2006Q1

REPORT INFORMATION
  Report Type: 
  Country: None (occurrence: None)
  Receive Date: 20060214
  Receipt Date: 20051013
  Transmission Date: 20060701
  Serious: Yes (Hospitalization)
  Sender: FDA-Public Use
  Company Number: US-MERCK-0510USA07564

PATIENT
  Age: 54 Year
  Sex: Male
  Weight: 100 kg

DRUGS (4)
  1. VIOXX [Suspect]
     Indication: INTERVERTEBRAL DISC DEGENERATION
     Route: 048
     Dates: start: 20010101, end: 20010601
  2. VIOXX [Suspect]
     Route: 048
     Dates: start: 20010101, end: 20010601
  3. VIOXX [Suspect]
     Indication: OSTEOARTHRITIS
     Route: 048
     Dates: start: 20010101, end: 20010601
  4. VIOXX [Suspect]
     Route: 048
     Dates: start: 20010101, end: 20010601

REACTIONS (7)
  - ACUTE MYOCARDIAL INFARCTION [None]
  - CARPAL TUNNEL SYNDROME [None]
  - CORONARY ARTERY DISEASE [None]
  - DYSLIPIDAEMIA [None]
  - EYE HAEMORRHAGE [None]
  - GASTROINTESTINAL HAEMORRHAGE [None]
  - SPINAL DISORDER [None]
